FAERS Safety Report 8471474-4 (Version None)
Quarter: 2012Q2

REPORT INFORMATION
  Report Type: 
  Country: None (occurrence: None)
  Receive Date: 20120627
  Receipt Date: 20120625
  Transmission Date: 20120825
  Serious: Yes (Other)
  Sender: FDA-Public Use
  Company Number: PHHY2012ES054609

PATIENT
  Age: 60 Year
  Sex: Male

DRUGS (1)
  1. CERTICAN [Suspect]
     Dosage: UNK UKN, UNK
     Dates: start: 20120101

REACTIONS (2)
  - MITRAL VALVE PROLAPSE [None]
  - MITRAL VALVE INCOMPETENCE [None]
